FAERS Safety Report 4435088-5 (Version None)
Quarter: 2004Q3

REPORT INFORMATION
  Report Type: 
  Country: None (occurrence: None)
  Receive Date: 20040826
  Receipt Date: 20040826
  Transmission Date: 20050211
  Serious: Yes (Other)
  Sender: FDA-Public Use
  Company Number: None

PATIENT
  Age: 56 Year
  Sex: Male
  Weight: 90.7194 kg

DRUGS (4)
  1. NOVOLOG MIX 70/30 [Suspect]
  2. ENALAPRIL [Concomitant]
  3. GLUCOPHAGE [Concomitant]
  4. VALIUM [Concomitant]

REACTIONS (4)
  - DIABETES MELLITUS INADEQUATE CONTROL [None]
  - DRUG INEFFECTIVE [None]
  - MALAISE [None]
  - PHARMACEUTICAL PRODUCT COMPLAINT [None]
